FAERS Safety Report 7584961-8 (Version None)
Quarter: 2011Q2

REPORT INFORMATION
  Report Type: 
  Country: None (occurrence: None)
  Receive Date: 20110630
  Receipt Date: 20110629
  Transmission Date: 20111010
  Serious: Yes (Death)
  Sender: FDA-Public Use
  Company Number: NL-ABBOTT-11P-114-0732700-00

PATIENT
  Sex: Female

DRUGS (2)
  1. SUFENTANIL CITRATE [Concomitant]
     Indication: PRODUCT USED FOR UNKNOWN INDICATION
  2. SEVOFLURANE [Suspect]
     Indication: COLOSTOMY
     Dosage: 1-3%
     Route: 055
     Dates: start: 20100618, end: 20100618

REACTIONS (1)
  - CONVULSION [None]
